FAERS Safety Report 20681314 (Version 1)
Quarter: 2022Q2

REPORT INFORMATION
  Report Type: Spontaneous
  Country: US (occurrence: US)
  Receive Date: 20220406
  Receipt Date: 20220406
  Transmission Date: 20220720
  Serious: No
  Sender: FDA-Public Use
  Company Number: US-SA-SAC20220404000085

PATIENT
  Age: 21 Year
  Sex: Male

DRUGS (3)
  1. DUPIXENT [Suspect]
     Active Substance: DUPILUMAB
     Indication: Dermatitis atopic
     Dosage: 300 MG, QOW
     Route: 058
     Dates: start: 20210305
  2. AMOXICILLIN [Concomitant]
     Active Substance: AMOXICILLIN
  3. PENICILLIN V POTASSIUM [Concomitant]
     Active Substance: PENICILLIN V POTASSIUM

REACTIONS (4)
  - Rash [Recovering/Resolving]
  - Discomfort [Recovering/Resolving]
  - Dermatitis atopic [Recovering/Resolving]
  - Condition aggravated [Not Recovered/Not Resolved]
